FAERS Safety Report 7625216-2 (Version None)
Quarter: 2011Q3

REPORT INFORMATION
  Report Type: 
  Country: None (occurrence: None)
  Receive Date: 20110713
  Receipt Date: 20110628
  Transmission Date: 20111222
  Serious: Yes (Other)
  Sender: FDA-Public Use
  Company Number: 2011MA008193

PATIENT
  Sex: Male

DRUGS (2)
  1. PYRIMETHAMIN/SULFADIAZINE [Concomitant]
  2. SULFATRIM PEDIATRIC [Suspect]
     Indication: ANTIFUNGAL PROPHYLAXIS

REACTIONS (1)
  - HAEMOLYSIS [None]
